FAERS Safety Report 8843163 (Version 1)
Quarter: 2012Q4

REPORT INFORMATION
  Report Type: 
  Country: NL (occurrence: NL)
  Receive Date: 20121016
  Receipt Date: 20121016
  Transmission Date: 20130627
  Serious: Yes (Hospitalization)
  Sender: FDA-Public Use
  Company Number: NL-PFIZER INC-2012251750

PATIENT
  Age: 77 Year
  Sex: Female
  Weight: 62 kg

DRUGS (7)
  1. GENOTROPIN [Suspect]
     Indication: GROWTH HORMONE DEFICIENCY
     Dosage: 0.3 mg, 7/wk
     Route: 058
     Dates: start: 20040108
  2. T4 [Concomitant]
     Indication: BLOOD THYROID STIMULATING HORMONE DECREASED
     Dosage: UNK
     Dates: start: 19840301
  3. TIMOLOL [Concomitant]
     Dosage: UNK
     Dates: start: 20000616, end: 20050627
  4. LATANOPROST [Concomitant]
     Indication: GLAUCOMA
     Dosage: UNK
     Dates: start: 20020101
  5. CARBASALATE CALCIUM [Concomitant]
     Indication: AMAUROSIS FUGAX
     Dosage: UNK
     Dates: start: 20020320
  6. ATORVASTATIN [Concomitant]
     Indication: HYPERCHOLESTEROLAEMIA
     Dosage: UNK
     Dates: start: 20020515
  7. DIPYRIDAMOL [Concomitant]
     Indication: BLOOD TEST ABNORMAL
     Dosage: UNK
     Dates: start: 20020320

REACTIONS (1)
  - Uterine prolapse [Unknown]
